FAERS Safety Report 7874987-9 (Version None)
Quarter: 2011Q4

REPORT INFORMATION
  Report Type: 
  Country: None (occurrence: None)
  Receive Date: 20111031
  Receipt Date: 20111020
  Transmission Date: 20120403
  Serious: Yes (Hospitalization)
  Sender: FDA-Public Use
  Company Number: US-US-EMD SERONO, INC.-7091065

PATIENT
  Sex: Female

DRUGS (1)
  1. REBIF [Suspect]
     Indication: MULTIPLE SCLEROSIS
     Route: 058
     Dates: start: 20051024, end: 20110523

REACTIONS (4)
  - GASTROENTERITIS VIRAL [None]
  - BLOOD POTASSIUM DECREASED [None]
  - LABORATORY TEST ABNORMAL [None]
  - FATIGUE [None]
